FAERS Safety Report 7026307-X (Version None)
Quarter: 2010Q4

REPORT INFORMATION
  Report Type: 
  Country: None (occurrence: None)
  Receive Date: 20101004
  Receipt Date: 20100927
  Transmission Date: 20110411
  Serious: Yes (Life-Threatening, Hospitalization)
  Sender: FDA-Public Use
  Company Number: JP-PFIZER INC-2010118916

PATIENT
  Age: 39 Year
  Sex: Female
  Weight: 54 kg

DRUGS (3)
  1. SOLU-MEDROL [Suspect]
     Indication: SHOCK
     Dosage: 500 MG/DAY
     Route: 042
     Dates: start: 20100906, end: 20100906
  2. GASTER [Concomitant]
     Indication: SHOCK
     Dosage: 20 MG/DAY
     Route: 042
     Dates: start: 20100906, end: 20100906
  3. SERETIDE MITE [Concomitant]
     Indication: ASTHMA
     Dosage: UNK
     Route: 055
     Dates: start: 20091021

REACTIONS (1)
  - HEPATIC FUNCTION ABNORMAL [None]
